FAERS Safety Report 16291869 (Version 4)
Quarter: 2019Q3

REPORT INFORMATION
  Report Type: Spontaneous
  Country: IT (occurrence: IT)
  Receive Date: 20190509
  Receipt Date: 20190731
  Transmission Date: 20191004
  Serious: Yes (Other)
  Sender: FDA-Public Use
  Company Number: IT-JNJFOC-20190510472

PATIENT
  Age: 45 Year

DRUGS (1)
  1. REMICADE [Suspect]
     Active Substance: INFLIXIMAB
     Indication: PSORIASIS
     Route: 042
     Dates: start: 20110919, end: 20190425

REACTIONS (1)
  - Lupus-like syndrome [Recovering/Resolving]

NARRATIVE: CASE EVENT DATE: 20190429
